FAERS Safety Report 7040067-8 (Version None)
Quarter: 2010Q4

REPORT INFORMATION
  Report Type: 
  Country: None (occurrence: None)
  Receive Date: 20101012
  Receipt Date: 20100928
  Transmission Date: 20110411
  Serious: Yes (Other)
  Sender: FDA-Public Use
  Company Number: PHHY2010US64635

PATIENT
  Sex: Male
  Weight: 2.721 kg

DRUGS (4)
  1. TEGRETOL-XR [Suspect]
     Indication: EPILEPSY
     Dosage: UNK
  2. LAMICTAL [Concomitant]
  3. PRENATAL VITAMINS [Concomitant]
  4. FOLIC ACID [Concomitant]

REACTIONS (3)
  - ATRIAL SEPTAL DEFECT [None]
  - CARDIAC MURMUR [None]
  - DRUG EXPOSURE DURING PREGNANCY [None]
